FAERS Safety Report 5955186-4 (Version None)
Quarter: 2008Q4

REPORT INFORMATION
  Report Type: 
  Country: None (occurrence: None)
  Receive Date: 20081117
  Receipt Date: 20081104
  Transmission Date: 20090506
  Serious: Yes (Hospitalization)
  Sender: FDA-Public Use
  Company Number: US-BIOGENIDEC-2008BI029659

PATIENT
  Age: 55 Year
  Sex: Female

DRUGS (16)
  1. TYSABRI [Suspect]
     Indication: MULTIPLE SCLEROSIS
     Route: 042
     Dates: start: 20080715
  2. METHADONE HCL [Concomitant]
     Route: 048
  3. TEMAZEPAM [Concomitant]
     Route: 048
  4. PREMARIN [Concomitant]
     Route: 048
  5. PROVIGIL [Concomitant]
     Route: 048
  6. CYMBALTA [Concomitant]
     Route: 048
  7. METOCLOPRAMIDE [Concomitant]
     Route: 048
  8. RANITIDINE [Concomitant]
     Route: 048
  9. DIAZEPAM [Concomitant]
     Indication: ANXIETY
     Route: 048
  10. POTASSIUM CHLORIDE [Concomitant]
     Route: 048
  11. MINOCYCLINE HCL [Concomitant]
     Route: 048
     Dates: start: 20080708, end: 20080718
  12. FIORICET [Concomitant]
     Indication: PAIN
     Route: 048
     Dates: start: 20081001
  13. HYDROXYZINE [Concomitant]
     Indication: PRURITUS
     Route: 048
     Dates: start: 20081001
  14. LEXAPRO [Concomitant]
     Route: 048
     Dates: start: 20081001
  15. VITAMIN B-12 [Concomitant]
     Indication: ANAEMIA
     Dates: start: 20081001
  16. IRON [Concomitant]
     Indication: ANAEMIA
     Dates: start: 20081001

REACTIONS (1)
  - CONVERSION DISORDER [None]
